FAERS Safety Report 9000248 (Version 2)
Quarter: 2013Q1

REPORT INFORMATION
  Report Type: Spontaneous
  Country: US (occurrence: US)
  Receive Date: 20130106
  Receipt Date: 20130304
  Transmission Date: 20140127
  Serious: No
  Sender: FDA-Public Use
  Company Number: US-ASTRAZENECA-2012SE93624

PATIENT
  Age: 73 Year
  Sex: Female
  Weight: 59 kg

DRUGS (3)
  1. SYMBICORT PMDI [Suspect]
     Indication: ASTHMA
     Dosage: 160 MCG, TWO PUFFS DAILY
     Route: 055
  2. SYMBICORT PMDI [Suspect]
     Indication: ASTHMA
     Dosage: 160 MCG, TWO PUFFS TWO TIMES A DAY
     Route: 055
  3. CRESTOR [Suspect]
     Indication: BLOOD CHOLESTEROL ABNORMAL
     Route: 048
     Dates: start: 2010

REACTIONS (4)
  - Asthma [Unknown]
  - Upper respiratory tract infection [Unknown]
  - Blood cholesterol increased [Unknown]
  - Off label use [Unknown]
